FAERS Safety Report 6925083-6 (Version None)
Quarter: 2010Q3

REPORT INFORMATION
  Report Type: 
  Country: None (occurrence: None)
  Receive Date: 20100816
  Receipt Date: 20100809
  Transmission Date: 20110219
  Serious: Yes (Death)
  Sender: FDA-Public Use
  Company Number: US-CELGENEUS-163-21880-10080701

PATIENT
  Sex: Male

DRUGS (2)
  1. REVLIMID [Suspect]
     Indication: MULTIPLE MYELOMA
     Route: 048
     Dates: start: 20100601, end: 20100101
  2. REVLIMID [Suspect]
     Route: 048
     Dates: start: 20100701

REACTIONS (3)
  - BLOOD PRESSURE DECREASED [None]
  - DISEASE PROGRESSION [None]
  - RENAL FAILURE [None]
